FAERS Safety Report 5976771-X (Version None)
Quarter: 2008Q4

REPORT INFORMATION
  Report Type: 
  Country: None (occurrence: None)
  Receive Date: 20081203
  Receipt Date: 20080917
  Transmission Date: 20090506
  Serious: No
  Sender: FDA-Public Use
  Company Number: US-AMGEN-KDL308288

PATIENT
  Sex: Male

DRUGS (3)
  1. ENBREL [Suspect]
     Indication: ANKYLOSING SPONDYLITIS
     Dates: start: 20060919
  2. SULFASALAZINE [Concomitant]
  3. INDOCIN [Concomitant]

REACTIONS (1)
  - TUBERCULIN TEST POSITIVE [None]
